FAERS Safety Report 14798650 (Version 3)
Quarter: 2018Q2

REPORT INFORMATION
  Report Type: Spontaneous
  Country: US (occurrence: US)
  Receive Date: 20180424
  Receipt Date: 20180608
  Transmission Date: 20180711
  Serious: Yes (Other)
  Sender: FDA-Public Use
  Company Number: US-EMD SERONO-9022281

PATIENT
  Sex: Female

DRUGS (1)
  1. REBIF [Suspect]
     Active Substance: INTERFERON BETA-1A
     Indication: MULTIPLE SCLEROSIS
     Route: 058
     Dates: start: 20110211, end: 20180501

REACTIONS (7)
  - Multiple sclerosis relapse [Unknown]
  - Uterine disorder [Unknown]
  - Injection site reaction [Unknown]
  - Drug ineffective [Unknown]
  - Diverticulitis [Unknown]
  - Stress urinary incontinence [Unknown]
  - Pernicious anaemia [Unknown]
